FAERS Safety Report 9909172 (Version 1)
Quarter: 2014Q1

REPORT INFORMATION
  Report Type: Spontaneous
  Country: US (occurrence: None)
  Receive Date: 20140214
  Receipt Date: 20140214
  Transmission Date: 20141002
  Serious: No
  Sender: FDA-Public Use
  Company Number: None

PATIENT
  Age: 20 Year
  Sex: Male

DRUGS (6)
  1. RISPERIDONE [Suspect]
     Route: 048
  2. HALOPERIDOL [Suspect]
     Route: 048
  3. BENZITROPINE [Concomitant]
  4. OLANZAPINE [Concomitant]
  5. HALDOL [Concomitant]
  6. TRAZODONE [Concomitant]

REACTIONS (1)
  - Eye movement disorder [None]
